FAERS Safety Report 23752501 (Version 1)
Quarter: 2024Q2

REPORT INFORMATION
  Report Type: Spontaneous
  Country: US (occurrence: None)
  Receive Date: 20240417
  Receipt Date: 20240417
  Transmission Date: 20240716
  Serious: No
  Sender: FDA-Public Use
  Company Number: None

PATIENT
  Age: 77 Year
  Sex: Male

DRUGS (1)
  1. AMBRISENTAN [Suspect]
     Active Substance: AMBRISENTAN
     Indication: Pulmonary arterial hypertension
     Dosage: FREQUENCY : DAILY;?
     Route: 048
     Dates: start: 20240312, end: 20240416

REACTIONS (5)
  - Vascular pain [None]
  - Peripheral swelling [None]
  - Gait disturbance [None]
  - Dyspnoea exertional [None]
  - Dyspnoea [None]

NARRATIVE: CASE EVENT DATE: 20240416
